FAERS Safety Report 23481470 (Version 2)
Quarter: 2024Q1

REPORT INFORMATION
  Report Type: Report from Study
  Country: CA (occurrence: CA)
  Receive Date: 20240205
  Receipt Date: 20240208
  Transmission Date: 20240410
  Serious: Yes (Hospitalization)
  Sender: FDA-Public Use
  Company Number: CA-002147023-NVSC2023CA273292

PATIENT
  Age: 73 Year
  Sex: Male

DRUGS (2)
  1. TAFINLAR [Suspect]
     Active Substance: DABRAFENIB MESYLATE
     Indication: BRAF V600E mutation positive
     Dosage: 150 MG, BID
     Route: 048
     Dates: start: 20231118
  2. MEKINIST [Suspect]
     Active Substance: TRAMETINIB DIMETHYL SULFOXIDE
     Indication: BRAF V600E mutation positive
     Dosage: 2 MG, QD
     Route: 048
     Dates: start: 20231118

REACTIONS (4)
  - Urinary tract infection [Unknown]
  - Pyrexia [Unknown]
  - Bone pain [Unknown]
  - Headache [Recovered/Resolved]
